FAERS Safety Report 24761441 (Version 1)
Quarter: 2024Q4

REPORT INFORMATION
  Report Type: Spontaneous
  Country: NL (occurrence: NL)
  Receive Date: 20241220
  Receipt Date: 20241220
  Transmission Date: 20250114
  Serious: Yes (Other)
  Sender: BAUSCH AND LOMB
  Company Number: None

PATIENT
  Age: 28 Year
  Sex: Female
  Weight: 75 kg

DRUGS (1)
  1. VENLAFAXINE [Suspect]
     Active Substance: VENLAFAXINE HYDROCHLORIDE
     Indication: Perinatal depression
     Dosage: MGA
     Route: 048
     Dates: start: 20200501

REACTIONS (2)
  - Osteoarthritis [Unknown]
  - Bruxism [Unknown]
